FAERS Safety Report 24148604 (Version 1)
Quarter: 2024Q3

REPORT INFORMATION
  Report Type: Spontaneous
  Country: US (occurrence: US)
  Receive Date: 20240729
  Receipt Date: 20240729
  Transmission Date: 20241017
  Serious: No
  Sender: LUNDBECK
  Company Number: US-LUNDBECK-DKLU4000353

PATIENT

DRUGS (1)
  1. VYEPTI [Suspect]
     Active Substance: EPTINEZUMAB\EPTINEZUMAB-JJMR
     Indication: Product used for unknown indication
     Dosage: 300 003
     Route: 041
     Dates: start: 20221017, end: 20240418

REACTIONS (2)
  - Pain [Unknown]
  - Headache [Unknown]
